FAERS Safety Report 22079852 (Version 2)
Quarter: 2023Q1

REPORT INFORMATION
  Report Type: Report from Study
  Country: US (occurrence: US)
  Receive Date: 20230309
  Receipt Date: 20230324
  Transmission Date: 20230418
  Serious: Yes (Hospitalization)
  Sender: FDA-Public Use
  Company Number: US-XERIS PHARMACEUTICALS-2023XER00054

PATIENT
  Age: 43 Year
  Sex: Male
  Weight: 128.35 kg

DRUGS (1)
  1. KEVEYIS [Suspect]
     Active Substance: DICHLORPHENAMIDE
     Indication: Paralysis
     Dosage: 1 TABLET (50 MG), 3X/DAY
     Route: 048
     Dates: start: 20190529

REACTIONS (7)
  - Myocardial infarction [Recovering/Resolving]
  - Angina unstable [Recovering/Resolving]
  - Acute coronary syndrome [Recovering/Resolving]
  - Sinus tachycardia [Recovered/Resolved]
  - Blood phosphorus decreased [Unknown]
  - Sinusitis [Recovering/Resolving]
  - Upper respiratory tract infection [Unknown]

NARRATIVE: CASE EVENT DATE: 20230215
